FAERS Safety Report 11788788 (Version 1)
Quarter: 2015Q4

REPORT INFORMATION
  Report Type: Spontaneous
  Country: DE (occurrence: DE)
  Receive Date: 20151201
  Receipt Date: 20151201
  Transmission Date: 20160305
  Serious: Yes (Other)
  Sender: FDA-Public Use
  Company Number: DE-BAYER-2015-473416

PATIENT
  Sex: Female

DRUGS (1)
  1. MIRENA [Suspect]
     Active Substance: LEVONORGESTREL
     Indication: CONTRACEPTION
     Dosage: 20 MCG/24HR, CONT
     Route: 067
     Dates: start: 201411

REACTIONS (14)
  - Headache [Unknown]
  - Abdominal pain [Unknown]
  - Pruritus [Unknown]
  - Panic attack [Unknown]
  - Mood swings [Unknown]
  - Weight decreased [Unknown]
  - Libido disorder [Unknown]
  - Pigmentation disorder [None]
  - Dizziness [Unknown]
  - Cardiovascular disorder [Unknown]
  - Nervousness [Unknown]
  - Acne [Unknown]
  - Nausea [Unknown]
  - Genital discomfort [Unknown]
